FAERS Safety Report 6183529-8 (Version None)
Quarter: 2009Q2

REPORT INFORMATION
  Report Type: 
  Country: None (occurrence: None)
  Receive Date: 20090507
  Receipt Date: 20090422
  Transmission Date: 20091009
  Serious: Yes (Death, Hospitalization, Other)
  Sender: FDA-Public Use
  Company Number: US-BRISTOL-MYERS SQUIBB COMPANY-13850482

PATIENT
  Age: 65 Year
  Sex: Male
  Weight: 112 kg

DRUGS (12)
  1. GLUCOPHAGE [Suspect]
     Indication: DIABETES MELLITUS
     Route: 065
     Dates: start: 20020101
  2. PRINIVIL [Suspect]
     Indication: PAIN
     Route: 048
  3. VIOXX [Suspect]
     Indication: PAIN
     Dosage: INCREASED TO 50MG/BID THEN FURTHER TO 50MG/DAILY
     Route: 048
     Dates: start: 19990101, end: 20030101
  4. VIOXX [Suspect]
     Indication: ARTHRITIS
     Dosage: INCREASED TO 50MG/BID THEN FURTHER TO 50MG/DAILY
     Route: 048
     Dates: start: 19990101, end: 20030101
  5. CODEINE SUL TAB [Suspect]
     Route: 065
  6. ASPIRIN [Concomitant]
     Dates: start: 20020130
  7. ATENOLOL [Concomitant]
     Dates: start: 20020201
  8. PAXIL [Concomitant]
  9. COUMADIN [Concomitant]
     Dates: start: 20000601, end: 20060101
  10. LASIX [Concomitant]
  11. LOVENOX [Concomitant]
     Dates: start: 20020131
  12. INSULINE NPH [Concomitant]
     Dates: start: 20020131

REACTIONS (31)
  - ABDOMINAL DISCOMFORT [None]
  - ARTHROPATHY [None]
  - CARDIAC FAILURE CONGESTIVE [None]
  - CARDIOVASCULAR DISORDER [None]
  - CEREBROVASCULAR ACCIDENT [None]
  - CHEST DISCOMFORT [None]
  - CORONARY ARTERY DISEASE [None]
  - COUGH [None]
  - DEPRESSION [None]
  - DIABETES MELLITUS [None]
  - DIARRHOEA [None]
  - DIZZINESS [None]
  - DRUG HYPERSENSITIVITY [None]
  - DYSPEPSIA [None]
  - EMBOLIC STROKE [None]
  - FATIGUE [None]
  - GASTROINTESTINAL DISORDER [None]
  - HEADACHE [None]
  - HIGH DENSITY LIPOPROTEIN DECREASED [None]
  - HYPERTENSION [None]
  - ISCHAEMIC STROKE [None]
  - MYOCARDIAL INFARCTION [None]
  - OVERDOSE [None]
  - PERICARDIAL EFFUSION [None]
  - PSORIATIC ARTHROPATHY [None]
  - RHINORRHOEA [None]
  - SNORING [None]
  - SUDDEN CARDIAC DEATH [None]
  - URINARY INCONTINENCE [None]
  - URINARY RETENTION [None]
  - URTICARIA [None]
